FAERS Safety Report 12061583 (Version 1)
Quarter: 2016Q1

REPORT INFORMATION
  Report Type: Spontaneous
  Country: PH (occurrence: US)
  Receive Date: 20160210
  Receipt Date: 20160210
  Transmission Date: 20160526
  Serious: No
  Sender: FDA-Public Use
  Company Number: PH-009507513-1602USA002834

PATIENT
  Sex: Female
  Weight: 48.53 kg

DRUGS (1)
  1. COZAAR [Suspect]
     Active Substance: LOSARTAN POTASSIUM
     Route: 048

REACTIONS (1)
  - Drug hypersensitivity [Unknown]
